FAERS Safety Report 12403014 (Version 3)
Quarter: 2016Q4

REPORT INFORMATION
  Report Type: Report from Study
  Country: CA (occurrence: CA)
  Receive Date: 20160525
  Receipt Date: 20161006
  Transmission Date: 20170207
  Serious: Yes (Hospitalization)
  Sender: FDA-Public Use
  Company Number: CA-UCBSA-2016018875

PATIENT
  Sex: Female

DRUGS (2)
  1. CERTOLIZUMAB PEGOL RA [Suspect]
     Active Substance: CERTOLIZUMAB PEGOL
     Indication: RHEUMATOID ARTHRITIS
     Dosage: 400 MG, EV 2 WEEKS(QOW) X 3
     Route: 058
     Dates: start: 20151208, end: 20160105
  2. CERTOLIZUMAB PEGOL RA [Suspect]
     Active Substance: CERTOLIZUMAB PEGOL
     Dosage: 200 MG, EV 2 WEEKS(QOW)
     Route: 058
     Dates: start: 20160119, end: 20160524

REACTIONS (5)
  - Hyperthermia [Recovered/Resolved]
  - Abdominal pain [Recovered/Resolved]
  - Parainfluenzae virus infection [Recovered/Resolved]
  - Pneumonia [Recovered/Resolved]
  - Diarrhoea [Recovered/Resolved]

NARRATIVE: CASE EVENT DATE: 2016
